FAERS Safety Report 17340299 (Version 1)
Quarter: 2020Q1

REPORT INFORMATION
  Report Type: Spontaneous
  Country: US (occurrence: US)
  Receive Date: 20200129
  Receipt Date: 20200129
  Transmission Date: 20200409
  Serious: No
  Sender: FDA-Public Use
  Company Number: US-ALLERGAN-1919686US

PATIENT
  Age: 55 Year
  Sex: Female

DRUGS (4)
  1. BOTOX [Suspect]
     Active Substance: ONABOTULINUMTOXINA
     Indication: MIGRAINE
     Dosage: UNK, SINGLE
     Route: 030
     Dates: start: 20190419, end: 20190419
  2. LORAZEPAM. [Concomitant]
     Active Substance: LORAZEPAM
     Indication: ANXIETY
  3. ESTRADIOL. [Concomitant]
     Active Substance: ESTRADIOL
     Route: 061
  4. VITAMINS [Concomitant]
     Active Substance: VITAMINS

REACTIONS (20)
  - Cardiac disorder [Not Recovered/Not Resolved]
  - Fatigue [Unknown]
  - Visual impairment [Unknown]
  - Migraine [Recovered/Resolved]
  - Dysphonia [Unknown]
  - Blood pressure fluctuation [Not Recovered/Not Resolved]
  - Eye swelling [Unknown]
  - Eyelid ptosis [Unknown]
  - Bladder disorder [Unknown]
  - Hypersensitivity [Recovering/Resolving]
  - Dyspnoea [Unknown]
  - Neck pain [Unknown]
  - Speech disorder [Unknown]
  - Headache [Unknown]
  - Dysphagia [Unknown]
  - Chest discomfort [Unknown]
  - Ocular hyperaemia [Unknown]
  - Throat tightness [Unknown]
  - Diplopia [Unknown]
  - Vision blurred [Not Recovered/Not Resolved]

NARRATIVE: CASE EVENT DATE: 201904
